FAERS Safety Report 14590779 (Version 2)
Quarter: 2018Q4

REPORT INFORMATION
  Report Type: Report from Study
  Country: US (occurrence: US)
  Receive Date: 20180302
  Receipt Date: 20181025
  Transmission Date: 20190204
  Serious: Yes (Other)
  Sender: FDA-Public Use
  Company Number: PHEH2018US007441

PATIENT
  Age: 46 Year
  Sex: Female

DRUGS (1)
  1. GILENYA [Suspect]
     Active Substance: FINGOLIMOD HYDROCHLORIDE
     Indication: MULTIPLE SCLEROSIS
     Dosage: 0.5 MG, QD
     Route: 048
     Dates: start: 20170906

REACTIONS (9)
  - Facial bones fracture [Unknown]
  - Multiple sclerosis [Unknown]
  - Fall [Unknown]
  - Jaw fracture [Unknown]
  - Mobility decreased [Not Recovered/Not Resolved]
  - Myalgia [Unknown]
  - Ligament sprain [Unknown]
  - Tooth fracture [Unknown]
  - Wrist fracture [Unknown]

NARRATIVE: CASE EVENT DATE: 20170906
